FAERS Safety Report 19086711 (Version 1)
Quarter: 2021Q2

REPORT INFORMATION
  Report Type: Spontaneous
  Country: US (occurrence: US)
  Receive Date: 20210402
  Receipt Date: 20210402
  Transmission Date: 20210717
  Serious: Yes (Hospitalization, Other)
  Sender: FDA-Public Use
  Company Number: US-PURACAP-US-2021EPCLIT00347

PATIENT
  Age: 23 Year
  Sex: Male

DRUGS (4)
  1. SODIUM BICARBONATE. [Interacting]
     Active Substance: SODIUM BICARBONATE
     Indication: ELECTROCARDIOGRAM QT PROLONGED
     Route: 065
  2. IBUPROFEN. [Suspect]
     Active Substance: IBUPROFEN
     Indication: PRODUCT USED FOR UNKNOWN INDICATION
     Route: 048
  3. BICARBONATE [Interacting]
     Active Substance: SODIUM BICARBONATE
     Route: 065
  4. MAGNESIUM [Interacting]
     Active Substance: MAGNESIUM
     Indication: ELECTROCARDIOGRAM QT PROLONGED

REACTIONS (11)
  - Electrocardiogram QT prolonged [Recovered/Resolved]
  - Toxicity to various agents [Unknown]
  - Gastrointestinal haemorrhage [Recovered/Resolved]
  - Unresponsive to stimuli [Recovered/Resolved]
  - Delirium [Recovered/Resolved]
  - Metabolic acidosis [Recovered/Resolved]
  - Mental status changes [Recovered/Resolved]
  - Agitation [Recovered/Resolved]
  - Renal injury [Recovered/Resolved]
  - Intentional overdose [Unknown]
  - Suicide attempt [Unknown]
